FAERS Safety Report 5970455-X (Version None)
Quarter: 2008Q4

REPORT INFORMATION
  Report Type: 
  Country: None (occurrence: None)
  Receive Date: 20081126
  Receipt Date: 20081023
  Transmission Date: 20090506
  Serious: No
  Sender: FDA-Public Use
  Company Number: US-ABBOTT-08P-163-0483813-00

PATIENT
  Sex: Male
  Weight: 127.12 kg

DRUGS (17)
  1. SIMCOR [Suspect]
     Indication: HYPOVITAMINOSIS
     Dosage: 1000/20MG
     Dates: end: 20081020
  2. SIMCOR [Suspect]
  3. SIMVASTATIN [Concomitant]
     Indication: DRUG USE FOR UNKNOWN INDICATION
  4. SODIUM BICARBONATE [Concomitant]
     Indication: RENAL DISORDER
  5. ZOLPIDEM TARTRATE [Concomitant]
     Indication: DRUG USE FOR UNKNOWN INDICATION
  6. M.V.I. [Concomitant]
     Indication: DRUG USE FOR UNKNOWN INDICATION
  7. LOSARTAN POTASSIUM [Concomitant]
     Indication: BLOOD PRESSURE
  8. ACETYLSALICYLIC ACID SRT [Concomitant]
     Indication: DRUG USE FOR UNKNOWN INDICATION
  9. CEREFOLIN NAC [Concomitant]
     Indication: BLOOD HOMOCYSTEINE ABNORMAL
  10. METOPROLOL FUMARATE [Concomitant]
     Indication: DRUG USE FOR UNKNOWN INDICATION
  11. CALCITRIOL [Concomitant]
     Indication: DRUG USE FOR UNKNOWN INDICATION
  12. POLYCARBOPHIL CALCIUM [Concomitant]
     Indication: DRUG USE FOR UNKNOWN INDICATION
  13. DOCUSATE SODIUM [Concomitant]
     Indication: DRUG USE FOR UNKNOWN INDICATION
  14. ZINC [Concomitant]
     Indication: DRUG USE FOR UNKNOWN INDICATION
  15. BENAZEPRIL HYDROCHLORIDE [Concomitant]
     Indication: DRUG USE FOR UNKNOWN INDICATION
  16. AMLODIPINE [Concomitant]
     Indication: DRUG USE FOR UNKNOWN INDICATION
  17. FERROUS SULFATE [Concomitant]
     Indication: DRUG USE FOR UNKNOWN INDICATION

REACTIONS (1)
  - DIARRHOEA [None]
